FAERS Safety Report 12861276 (Version 2)
Quarter: 2016Q4

REPORT INFORMATION
  Report Type: Report from Study
  Country: US (occurrence: US)
  Receive Date: 20161019
  Receipt Date: 20161031
  Transmission Date: 20170207
  Serious: Yes (Death)
  Sender: FDA-Public Use
  Company Number: US-EMD SERONO-E2B_80051474

PATIENT
  Age: 51 Year
  Sex: Female

DRUGS (1)
  1. REBIF [Suspect]
     Active Substance: INTERFERON BETA-1A
     Indication: MULTIPLE SCLEROSIS
     Route: 058
     Dates: start: 20030401

REACTIONS (9)
  - Lung disorder [Not Recovered/Not Resolved]
  - Fluid retention [Unknown]
  - Peripheral swelling [Not Recovered/Not Resolved]
  - Pain [Unknown]
  - Death [Fatal]
  - Cardiovascular disorder [Not Recovered/Not Resolved]
  - Sleep apnoea syndrome [Unknown]
  - Secretion discharge [Unknown]
  - Alopecia [Unknown]

NARRATIVE: CASE EVENT DATE: 201604
